FAERS Safety Report 8785740 (Version 1)
Quarter: 2012Q4

REPORT INFORMATION
  Report Type: 
  Country: US (occurrence: US)
  Receive Date: 20120914
  Receipt Date: 20120914
  Transmission Date: 20130627
  Serious: Yes (Hospitalization)
  Sender: FDA-Public Use
  Company Number: US-GLAXOSMITHKLINE-A0843564A

PATIENT
  Age: 48 Year
  Sex: Female
  Weight: 104.5 kg

DRUGS (2)
  1. AVANDARYL [Suspect]
     Indication: TYPE 2 DIABETES MELLITUS
     Route: 048
     Dates: start: 200610, end: 200612
  2. AVANDAMET [Suspect]
     Indication: DIABETES MELLITUS
     Route: 065

REACTIONS (4)
  - Cardiovascular disorder [Unknown]
  - Chest pain [Unknown]
  - Oedema [Unknown]
  - Dyspnoea [Unknown]
